FAERS Safety Report 15279475 (Version 1)
Quarter: 2018Q3

REPORT INFORMATION
  Report Type: Spontaneous
  Country: US (occurrence: US)
  Receive Date: 20180815
  Receipt Date: 20180815
  Transmission Date: 20181010
  Serious: No
  Sender: FDA-Public Use
  Company Number: US-009507513-1807USA009760

PATIENT
  Sex: Female

DRUGS (1)
  1. BELSOMRA [Suspect]
     Active Substance: SUVOREXANT
     Dosage: 1 TABLET (STRENGTH: 10 MG), UNK
     Route: 048

REACTIONS (5)
  - No adverse event [Unknown]
  - Product quality issue [Unknown]
  - Product packaging quantity issue [Unknown]
  - Drug dose omission [Unknown]
  - Circumstance or information capable of leading to medication error [Unknown]

NARRATIVE: CASE EVENT DATE: 201807
